FAERS Safety Report 10472666 (Version 1)
Quarter: 2014Q3

REPORT INFORMATION
  Report Type: Spontaneous
  Country: US (occurrence: US)
  Receive Date: 20140924
  Receipt Date: 20140924
  Transmission Date: 20150326
  Serious: Yes (Death, Other)
  Sender: FDA-Public Use
  Company Number: US-ABBVIE-14P-163-1287310-00

PATIENT
  Age: 67 Year
  Sex: Male

DRUGS (2)
  1. ANDROGEL [Suspect]
     Active Substance: TESTOSTERONE
     Indication: BLOOD TESTOSTERONE DECREASED
     Dates: end: 201309
  2. ANDRODERM [Suspect]
     Active Substance: TESTOSTERONE
     Indication: BLOOD TESTOSTERONE DECREASED
     Dates: end: 201309

REACTIONS (8)
  - Economic problem [Unknown]
  - Loss of employment [Unknown]
  - Fear [Unknown]
  - Anxiety [Unknown]
  - Social problem [Unknown]
  - Myocardial infarction [Fatal]
  - Anhedonia [Unknown]
  - Pain [Unknown]
